FAERS Safety Report 8447135-4 (Version None)
Quarter: 2012Q2

REPORT INFORMATION
  Report Type: 
  Country: None (occurrence: None)
  Receive Date: 20120619
  Receipt Date: 20110609
  Transmission Date: 20120825
  Serious: No
  Sender: FDA-Public Use
  Company Number: US-PFIZER INC-K201100698

PATIENT
  Age: 60 Year
  Sex: Female

DRUGS (2)
  1. LEVOXYL [Suspect]
     Indication: AUTOIMMUNE THYROIDITIS
     Dosage: UNK
     Route: 048
     Dates: start: 20030101, end: 20110301
  2. LEVOXYL [Suspect]
     Dosage: 88 UG, UNK
     Route: 048
     Dates: start: 20110401

REACTIONS (7)
  - HEART RATE INCREASED [None]
  - JOINT STIFFNESS [None]
  - WEIGHT INCREASED [None]
  - BLOOD CHOLESTEROL INCREASED [None]
  - HEART RATE DECREASED [None]
  - CHEST PAIN [None]
  - PALPITATIONS [None]
